FAERS Safety Report 15808921 (Version 1)
Quarter: 2019Q1

REPORT INFORMATION
  Report Type: Spontaneous
  Country: PT (occurrence: PT)
  Receive Date: 20190110
  Receipt Date: 20190110
  Transmission Date: 20190417
  Serious: Yes (Other)
  Sender: FDA-Public Use
  Company Number: PHHY2019PT003628

PATIENT
  Age: 58 Year
  Sex: Female

DRUGS (2)
  1. AMOXICILLINA E ACIDO CLAVULANICO SANDOZ [Suspect]
     Active Substance: AMOXICILLIN\CLAVULANATE POTASSIUM
     Indication: URINARY TRACT INFECTION
     Dosage: 1 DF, Q12H
     Route: 048
     Dates: start: 20170413
  2. SPASMOPLEX [Suspect]
     Active Substance: TROSPIUM CHLORIDE
     Indication: URINARY TRACT INFECTION
     Dosage: 60 MG, QD
     Route: 048
     Dates: start: 20170413

REACTIONS (10)
  - Malaise [Recovered/Resolved]
  - Skin lesion [Recovered/Resolved]
  - Muscle tightness [Recovered/Resolved]
  - Dizziness [Recovered/Resolved]
  - Rash maculo-papular [Recovered/Resolved]
  - Rash pruritic [Recovered/Resolved]
  - Cough [Recovered/Resolved]
  - Face oedema [Recovered/Resolved]
  - Nasal obstruction [Recovered/Resolved]
  - Vomiting [Recovered/Resolved]

NARRATIVE: CASE EVENT DATE: 20170413
